FAERS Safety Report 21696142 (Version 3)
Quarter: 2023Q2

REPORT INFORMATION
  Report Type: Spontaneous
  Country: CA (occurrence: CA)
  Receive Date: 20221207
  Receipt Date: 20230501
  Transmission Date: 20230721
  Serious: Yes (Other)
  Sender: FDA-Public Use
  Company Number: CA-VERTEX PHARMACEUTICALS-2022-018250

PATIENT
  Age: 20 Year
  Sex: Female

DRUGS (11)
  1. TRIKAFTA [Suspect]
     Active Substance: ELEXACAFTOR\IVACAFTOR\TEZACAFTOR
     Indication: Cystic fibrosis
     Dosage: 2 ORANGE TABS IN AM AND 1 BLUE TAB IN PM
     Route: 048
     Dates: start: 202007
  2. COTAZYM ECS [Concomitant]
  3. VITAMIN E [Concomitant]
     Active Substance: .ALPHA.-TOCOPHEROL
     Dosage: 400
  4. VITAMIN D [Concomitant]
     Active Substance: VITAMIN D NOS
     Dosage: 30000/SERM
  5. VITAMIN A+D [Concomitant]
     Dosage: 1000/800 UI
  6. PULMOZYME [Concomitant]
     Active Substance: DORNASE ALFA
     Dosage: DAILY
  7. COLYMYCIN [Concomitant]
     Dosage: 75 MILLIGRAM, BID
     Route: 055
  8. CAYSTON [Concomitant]
     Active Substance: AZTREONAM
     Dosage: 75 MG TID
     Route: 055
  9. ADVAIR HFA [Concomitant]
     Active Substance: FLUTICASONE PROPIONATE\SALMETEROL XINAFOATE
     Dosage: UNK, BID
  10. CLOFAZIMINE [Concomitant]
     Active Substance: CLOFAZIMINE
     Dosage: DAILY
  11. LINEZOLID [Concomitant]
     Active Substance: LINEZOLID
     Dosage: DAILY

REACTIONS (3)
  - Abortion spontaneous [Recovered/Resolved]
  - Respiratory tract infection bacterial [Recovered/Resolved]
  - Exposure during pregnancy [Unknown]

NARRATIVE: CASE EVENT DATE: 20220726
